FAERS Safety Report 21882046 (Version 1)
Quarter: 2023Q1

REPORT INFORMATION
  Report Type: Spontaneous
  Country: UZ (occurrence: UZ)
  Receive Date: 20230119
  Receipt Date: 20230119
  Transmission Date: 20230418
  Serious: Yes (Hospitalization)
  Sender: FDA-Public Use
  Company Number: UZ-JNJFOC-20230119150

PATIENT
  Age: 76 Year
  Sex: Male
  Weight: 60 kg

DRUGS (9)
  1. SIRTURO [Suspect]
     Active Substance: BEDAQUILINE FUMARATE
     Indication: Tuberculosis
     Dosage: 400
     Route: 048
     Dates: start: 20220725, end: 20220808
  2. SIRTURO [Suspect]
     Active Substance: BEDAQUILINE FUMARATE
     Dosage: 200
     Route: 048
     Dates: start: 20220810, end: 20221208
  3. SIRTURO [Suspect]
     Active Substance: BEDAQUILINE FUMARATE
     Dosage: 200
     Route: 048
     Dates: start: 20221213
  4. CLOFAZIMINE [Suspect]
     Active Substance: CLOFAZIMINE
     Indication: Tuberculosis
     Dosage: 100
     Route: 065
     Dates: start: 20220725, end: 20221208
  5. CLOFAZIMINE [Suspect]
     Active Substance: CLOFAZIMINE
     Route: 065
     Dates: start: 20221213
  6. LINEZOLID [Suspect]
     Active Substance: LINEZOLID
     Indication: Tuberculosis
     Dosage: 300
     Route: 065
     Dates: start: 20220725, end: 20221208
  7. LINEZOLID [Suspect]
     Active Substance: LINEZOLID
     Dosage: 300
     Route: 065
     Dates: start: 20221213, end: 20221223
  8. MOXIFLOXACIN [Suspect]
     Active Substance: MOXIFLOXACIN
     Indication: Tuberculosis
     Dosage: 400
     Route: 065
     Dates: start: 20220725, end: 20221208
  9. MOXIFLOXACIN [Suspect]
     Active Substance: MOXIFLOXACIN
     Route: 065
     Dates: start: 20221213

REACTIONS (1)
  - Pruritus allergic [Recovering/Resolving]

NARRATIVE: CASE EVENT DATE: 20221111
